FAERS Safety Report 17974985 (Version 2)
Quarter: 2020Q3

REPORT INFORMATION
  Report Type: Spontaneous
  Country: PT (occurrence: PT)
  Receive Date: 20200702
  Receipt Date: 20200724
  Transmission Date: 20201103
  Serious: Yes (Hospitalization, Other)
  Sender: FDA-Public Use
  Company Number: PT-BAYER-2020-126989

PATIENT
  Age: 53 Year
  Sex: Female

DRUGS (2)
  1. GLUCOSAMINE [Suspect]
     Active Substance: GLUCOSAMINE
     Indication: PAIN
     Dosage: 1500 MILLIGRAM, DAILY
     Route: 065
  2. NAPROXEN SODIUM ({= 220 MG) [Suspect]
     Active Substance: NAPROXEN SODIUM
     Indication: PAIN
     Dosage: IN PERIODS OF PAIN EXACERBATION ON THEIR OWN INITIATIVE
     Route: 065

REACTIONS (12)
  - Blood immunoglobulin A increased [Recovered/Resolved]
  - Haematuria [Recovered/Resolved]
  - Normochromic normocytic anaemia [Recovered/Resolved]
  - Red blood cells urine positive [Recovered/Resolved]
  - Proteinuria [Recovered/Resolved]
  - Acute kidney injury [Recovered/Resolved]
  - IgA nephropathy [Recovered/Resolved]
  - Blood immunoglobulin G increased [Recovered/Resolved]
  - Condition aggravated [Recovered/Resolved]
  - Nausea [Recovered/Resolved]
  - Tonsillitis [Recovered/Resolved]
  - Microalbuminuria [Recovered/Resolved]
